FAERS Safety Report 4631183-6 (Version None)
Quarter: 2005Q2

REPORT INFORMATION
  Report Type: 
  Country: None (occurrence: None)
  Receive Date: 20050405
  Receipt Date: 20050405
  Transmission Date: 20051028
  Serious: Yes (Other)
  Sender: FDA-Public Use
  Company Number: None

PATIENT
  Age: 42 Year
  Sex: Male
  Weight: 68.9467 kg

DRUGS (2)
  1. OXYCONTIN [Suspect]
     Indication: ATROPHY
     Dosage: 80 MG PO (2) TID
     Route: 048
  2. OXYCONTIN [Suspect]
     Indication: NERVOUS SYSTEM DISORDER
     Dosage: 80 MG PO (2) TID
     Route: 048

REACTIONS (2)
  - DRUG INEFFECTIVE [None]
  - PHARMACEUTICAL PRODUCT COMPLAINT [None]
